FAERS Safety Report 4664224-0 (Version None)
Quarter: 2005Q2

REPORT INFORMATION
  Report Type: 
  Country: None (occurrence: None)
  Receive Date: 20050516
  Receipt Date: 20050502
  Transmission Date: 20051028
  Serious: Yes (Life-Threatening, Hospitalization)
  Sender: FDA-Public Use
  Company Number: 049-0981-M0200498

PATIENT
  Age: 68 Year
  Sex: Male

DRUGS (14)
  1. ATORVASTATIN CALCIUM [Suspect]
     Indication: HYPERLIPIDAEMIA
     Dosage: 20 MG (DAILY), ORAL
     Route: 048
     Dates: start: 20010101
  2. PREDNISONE [Suspect]
     Indication: CONTRAST MEDIA REACTION
     Dosage: (DAILY), INTRAVENOUS
     Route: 042
     Dates: start: 20020321, end: 20020323
  3. TORSEMIDE [Suspect]
     Indication: HYPERTENSION
     Dosage: 10 MG (DAILY), ORAL
     Route: 048
  4. OMEPRAZOLE [Concomitant]
  5. RAMIPRIL [Concomitant]
  6. MIGLITOL (MIGLITOL) [Concomitant]
  7. DIGITOXIN TAB [Concomitant]
  8. PAYNOCIL (ACETYLSALICYLIC ACID, AMINOACETIC ACID) [Concomitant]
  9. CLOPIDOGREL BISULFATE [Concomitant]
  10. GLYBURIDE [Concomitant]
  11. MOLSIDOMINE (MOLSIDOMINE) [Concomitant]
  12. GLYCERYL TRINITRATE (GLYCERY TRINITRATE) [Concomitant]
  13. CARVEDILOL [Concomitant]
  14. SPIRONOLACTONE [Concomitant]

REACTIONS (7)
  - ANAPHYLACTIC REACTION [None]
  - ASTHENIA [None]
  - CONTRAST MEDIA REACTION [None]
  - DIABETES MELLITUS [None]
  - DRUG INTERACTION [None]
  - FATIGUE [None]
  - MYALGIA [None]
